FAERS Safety Report 4988462-2 (Version None)
Quarter: 2006Q2

REPORT INFORMATION
  Report Type: 
  Country: None (occurrence: None)
  Receive Date: 20060502
  Receipt Date: 20060420
  Transmission Date: 20061013
  Serious: Yes (Hospitalization)
  Sender: FDA-Public Use
  Company Number: PHRM2006FR01402

PATIENT
  Age: 89 Year
  Sex: Female

DRUGS (9)
  1. NISISCO [Suspect]
     Indication: HYPERTENSION
     Dosage: 1 DF, QD
     Route: 048
     Dates: end: 20060217
  2. PAROXETINE HYDROCHLORIDE [Suspect]
     Indication: CONFUSIONAL STATE
     Dosage: 20 MG, QD
     Dates: start: 20060222, end: 20060223
  3. LORAZEPAM [Concomitant]
     Route: 048
  4. CACIT D3 [Concomitant]
     Route: 048
  5. UTEPLEX [Concomitant]
     Route: 048
  6. FOSAMAX [Concomitant]
     Route: 048
  7. CORDARONE [Concomitant]
     Route: 048
  8. NIDREL [Concomitant]
     Route: 048
  9. NISIS [Concomitant]
     Indication: HYPERTENSION
     Route: 048
     Dates: start: 20060217

REACTIONS (4)
  - ABNORMAL BEHAVIOUR [None]
  - AGITATION [None]
  - CONFUSIONAL STATE [None]
  - HYPONATRAEMIA [None]
